APPROVED DRUG PRODUCT: CYPROHEPTADINE HYDROCHLORIDE
Active Ingredient: CYPROHEPTADINE HYDROCHLORIDE
Strength: 4MG
Dosage Form/Route: TABLET;ORAL
Application: A206553 | Product #001 | TE Code: AA
Applicant: APPCO PHARMA LLC
Approved: Nov 29, 2016 | RLD: No | RS: No | Type: RX